FAERS Safety Report 24272667 (Version 1)
Quarter: 2024Q3

REPORT INFORMATION
  Report Type: Other
  Country: IN (occurrence: IN)
  Receive Date: 20240902
  Receipt Date: 20240902
  Transmission Date: 20241016
  Serious: Yes (Hospitalization, Other)
  Sender: DEXCEL
  Company Number: IN-DEXPHARM-2024-2953

PATIENT
  Age: 69 Year
  Sex: Female

DRUGS (11)
  1. PANTOPRAZOLE [Suspect]
     Active Substance: PANTOPRAZOLE
  2. CLOPIDOGREL [Concomitant]
     Active Substance: CLOPIDOGREL BISULFATE
  3. ASPIRIN [Concomitant]
     Active Substance: ASPIRIN
  4. ATORVASTATIN [Concomitant]
     Active Substance: ATORVASTATIN
  5. TELMISARTAN [Concomitant]
     Active Substance: TELMISARTAN
  6. METOPROLOL [Concomitant]
     Active Substance: METOPROLOL
  7. Intravenous magnesium sulfate [Concomitant]
     Route: 050
  8. Intravenous calcium gluconate [Concomitant]
     Route: 050
  9. CALCIUM CARBONATE [Concomitant]
     Active Substance: CALCIUM CARBONATE
     Route: 050
  10. CALCITRIOL [Concomitant]
     Active Substance: CALCITRIOL
     Dosage: 0.5 ?G
  11. RANITIDINE [Concomitant]
     Active Substance: RANITIDINE

REACTIONS (5)
  - Generalised tonic-clonic seizure [Recovered/Resolved]
  - Hypomagnesaemia [Recovered/Resolved]
  - Hypocalcaemia [Recovered/Resolved]
  - Hypokalaemia [Recovered/Resolved]
  - Hyperparathyroidism [Unknown]
